FAERS Safety Report 18853978 (Version 1)
Quarter: 2021Q1

REPORT INFORMATION
  Report Type: Spontaneous
  Country: US (occurrence: US)
  Receive Date: 20210205
  Receipt Date: 20210205
  Transmission Date: 20210420
  Serious: No
  Sender: FDA-Public Use
  Company Number: US-PFIZER INC-2021112201

PATIENT
  Age: 57 Year
  Sex: Male

DRUGS (2)
  1. MEKTOVI [Suspect]
     Active Substance: BINIMETINIB
     Indication: LYMPHOMA
     Dosage: 45 MG, 2X/DAY
     Dates: start: 20190108
  2. BRAFTOVI [Suspect]
     Active Substance: ENCORAFENIB
     Dosage: 300 MG, 1X/DAY
     Dates: start: 20190108

REACTIONS (1)
  - Pain in extremity [Unknown]
